FAERS Safety Report 17332863 (Version 1)
Quarter: 2020Q1

REPORT INFORMATION
  Report Type: Spontaneous
  Country: FR (occurrence: FR)
  Receive Date: 20200128
  Receipt Date: 20200128
  Transmission Date: 20200409
  Serious: Yes (Hospitalization)
  Sender: FDA-Public Use
  Company Number: FR-SUN PHARMACEUTICAL INDUSTRIES LTD-2020RR-234575

PATIENT
  Age: 22 Year
  Sex: Female

DRUGS (1)
  1. TRAMADOL. [Suspect]
     Active Substance: TRAMADOL
     Indication: INTENTIONAL PRODUCT MISUSE
     Dosage: NON PRECISEE ()
     Route: 048
     Dates: start: 2018

REACTIONS (5)
  - Tachycardia [Recovered/Resolved]
  - Hypertonia [Recovered/Resolved]
  - Oxygen saturation decreased [Recovered/Resolved]
  - Drug abuse [Unknown]
  - Somnolence [Recovered/Resolved]

NARRATIVE: CASE EVENT DATE: 201908
